FAERS Safety Report 25680944 (Version 1)
Quarter: 2025Q3

REPORT INFORMATION
  Report Type: Spontaneous
  Country: JP (occurrence: JP)
  Receive Date: 20250814
  Receipt Date: 20250814
  Transmission Date: 20251020
  Serious: Yes (Hospitalization)
  Sender: ROCHE
  Company Number: JP-CHUGAI-2025025861

PATIENT
  Age: 7 Decade
  Sex: Female

DRUGS (1)
  1. VABYSMO [Suspect]
     Active Substance: FARICIMAB-SVOA
     Indication: Retinal degeneration
     Route: 031
     Dates: start: 20250526, end: 20250526

REACTIONS (1)
  - Eye haemorrhage [Recovering/Resolving]
